FAERS Safety Report 15784798 (Version 3)
Quarter: 2020Q1

REPORT INFORMATION
  Report Type: Spontaneous
  Country: US (occurrence: US)
  Receive Date: 20190103
  Receipt Date: 20200205
  Transmission Date: 20200409
  Serious: No
  Sender: FDA-Public Use
  Company Number: US-BIOGEN-2018BI00669400

PATIENT
  Age: 37 Year
  Sex: Female

DRUGS (4)
  1. SYNTHROID [Concomitant]
     Active Substance: LEVOTHYROXINE SODIUM
     Route: 050
  2. TECFIDERA [Suspect]
     Active Substance: DIMETHYL FUMARATE
     Dosage: MAINTENANCE DOSE
     Route: 050
     Dates: start: 20181205
  3. TECFIDERA [Suspect]
     Active Substance: DIMETHYL FUMARATE
     Route: 048
     Dates: start: 201810
  4. TECFIDERA [Suspect]
     Active Substance: DIMETHYL FUMARATE
     Indication: MULTIPLE SCLEROSIS
     Dosage: STARTING DOSE
     Route: 050
     Dates: start: 20181126, end: 20181204

REACTIONS (18)
  - Gastric disorder [Not Recovered/Not Resolved]
  - Anger [Not Recovered/Not Resolved]
  - Urinary retention [Unknown]
  - Negative thoughts [Unknown]
  - Abdominal discomfort [Recovered/Resolved]
  - Haemoglobin abnormal [Unknown]
  - Dizziness [Recovered/Resolved]
  - Flushing [Unknown]
  - Aggression [Not Recovered/Not Resolved]
  - Muscle spasms [Unknown]
  - Irritability [Not Recovered/Not Resolved]
  - Mood altered [Recovered/Resolved]
  - Product dose omission [Unknown]
  - Abdominal distension [Not Recovered/Not Resolved]
  - Mood swings [Unknown]
  - Urinary tract infection [Not Recovered/Not Resolved]
  - Depression [Unknown]
  - Pain [Unknown]

NARRATIVE: CASE EVENT DATE: 20181201
